FAERS Safety Report 18754883 (Version 1)
Quarter: 2021Q1

REPORT INFORMATION
  Report Type: Spontaneous
  Country: US (occurrence: US)
  Receive Date: 20210119
  Receipt Date: 20210119
  Transmission Date: 20210419
  Serious: Yes (Other)
  Sender: FDA-Public Use
  Company Number: US-AGIOS-2101US02444

PATIENT

DRUGS (1)
  1. TIBSOVO [Suspect]
     Active Substance: IVOSIDENIB
     Indication: ACUTE MYELOID LEUKAEMIA

REACTIONS (8)
  - Isocitrate dehydrogenase gene mutation [Unknown]
  - Janus kinase 2 mutation [Unknown]
  - Differentiation syndrome [Unknown]
  - Neutrophilia [Unknown]
  - Marrow hyperplasia [Unknown]
  - Blast cell count increased [Unknown]
  - Polycythaemia vera [Unknown]
  - Leukocytosis [Unknown]
